FAERS Safety Report 5727777-7 (Version None)
Quarter: 2008Q2

REPORT INFORMATION
  Report Type: 
  Country: None (occurrence: None)
  Receive Date: 20080505
  Receipt Date: 20080423
  Transmission Date: 20081010
  Serious: Yes (Other)
  Sender: FDA-Public Use
  Company Number: US-PFIZER INC-2008035885

PATIENT
  Sex: Female
  Weight: 65.91 kg

DRUGS (5)
  1. GEODON [Suspect]
     Indication: BIPOLAR I DISORDER
     Dosage: FREQ:DAILY
     Dates: start: 20060301, end: 20070601
  2. ZOLOFT [Concomitant]
  3. KLONOPIN [Concomitant]
  4. WELLBUTRIN [Concomitant]
  5. DOXAZOSIN MESYLATE [Concomitant]

REACTIONS (13)
  - AMNESIA [None]
  - ARTHRALGIA [None]
  - BLOOD CORTISOL INCREASED [None]
  - CHAPPED LIPS [None]
  - DROOLING [None]
  - FEELING ABNORMAL [None]
  - GAIT DISTURBANCE [None]
  - JOINT SWELLING [None]
  - NERVOUSNESS [None]
  - RESTLESS LEGS SYNDROME [None]
  - TARDIVE DYSKINESIA [None]
  - WEIGHT INCREASED [None]
  - WITHDRAWAL SYNDROME [None]
